FAERS Safety Report 8643741 (Version 5)
Quarter: 2017Q4

REPORT INFORMATION
  Report Type: Report from Study
  Country: BR (occurrence: BR)
  Receive Date: 20120629
  Receipt Date: 20171220
  Transmission Date: 20180321
  Serious: Yes (Other)
  Sender: FDA-Public Use
  Company Number: BR-ROCHE-1070228

PATIENT
  Age: 75 Year
  Sex: Male
  Weight: 52 kg

DRUGS (9)
  1. MABTHERA [Suspect]
     Active Substance: RITUXIMAB
     Dosage: ON 04/DEC/2017: LATEST RITUXIMAB INFUSION
     Route: 042
     Dates: start: 20160630
  2. ARAVA [Concomitant]
     Active Substance: LEFLUNOMIDE
     Route: 065
  3. DIVELOL [Concomitant]
     Route: 065
  4. REUQUINOL [Concomitant]
     Active Substance: HYDROXYCHLOROQUINE SULFATE
  5. MABTHERA [Suspect]
     Active Substance: RITUXIMAB
     Indication: RHEUMATOID ARTHRITIS
     Route: 042
     Dates: start: 20100801
  6. MONOCORDIL [Concomitant]
     Active Substance: ISOSORBIDE MONONITRATE
     Route: 065
  7. CORUS H [Concomitant]
     Active Substance: HYDROCHLOROTHIAZIDE\LOSARTAN POTASSIUM
     Route: 065
  8. GLIFAGE [Concomitant]
     Active Substance: METFORMIN HYDROCHLORIDE
     Route: 065
  9. BONVIVA [Concomitant]
     Active Substance: IBANDRONATE SODIUM

REACTIONS (8)
  - Dengue fever [Recovering/Resolving]
  - Diabetes mellitus [Not Recovered/Not Resolved]
  - Headache [Unknown]
  - Platelet count decreased [Unknown]
  - Anaemia [Unknown]
  - Pain [Unknown]
  - Somnolence [Unknown]
  - Hepatitis [Unknown]

NARRATIVE: CASE EVENT DATE: 201111
